FAERS Safety Report 13058036 (Version 2)
Quarter: 2017Q1

REPORT INFORMATION
  Report Type: Spontaneous
  Country: KR (occurrence: KR)
  Receive Date: 20161223
  Receipt Date: 20170303
  Transmission Date: 20170428
  Serious: Yes (Other)
  Sender: FDA-Public Use
  Company Number: KR-009507513-1612KOR008244

PATIENT
  Age: 48 Year
  Sex: Male
  Weight: 81 kg

DRUGS (11)
  1. GLYCOPYRROLATE. [Concomitant]
     Active Substance: GLYCOPYRROLATE
     Indication: PREMEDICATION
     Dosage: 0.2 MG, 30 MINUTES PRIOR TO ARRIVAL IN THE OPERATING ROOM
     Route: 030
  2. REMIFENTANIL HYDROCHLORIDE [Concomitant]
     Active Substance: REMIFENTANIL HYDROCHLORIDE
     Indication: MAINTENANCE OF ANAESTHESIA
     Dosage: 0.1 MICROGRAM/KG/MIN
  3. SUGAMMADEX SODIUM [Suspect]
     Active Substance: SUGAMMADEX SODIUM
     Indication: NEUROMUSCULAR BLOCKADE REVERSAL
     Dosage: 400 MG (4.93 MG/KG), 5 MINUTES BEFORE EXTUBATION
  4. DESFLURANE. [Concomitant]
     Active Substance: DESFLURANE
     Indication: MAINTENANCE OF ANAESTHESIA
     Dosage: 5?6 VOL%
  5. LIDOCAINE. [Concomitant]
     Active Substance: LIDOCAINE
     Indication: INDUCTION OF ANAESTHESIA
     Dosage: 40 MG, UNK
  6. OXYGEN. [Concomitant]
     Active Substance: OXYGEN
     Dosage: 1.5 L/MIN CONTINUOUS INFUSION FOR ANESTHESIA MAINTENANCE
  7. OXYGEN. [Concomitant]
     Active Substance: OXYGEN
     Indication: MAINTENANCE OF ANAESTHESIA
     Dosage: 100% DURING ANESTHESIA INDUCTION
  8. ROCURONIUM BROMIDE. [Suspect]
     Active Substance: ROCURONIUM BROMIDE
     Dosage: 810 MICROGRAM/KG/MIN, TOTAL ROCURONIUM DOSE WAS 830 MG
     Route: 041
  9. SUGAMMADEX SODIUM [Suspect]
     Active Substance: SUGAMMADEX SODIUM
     Dosage: 200 MG
  10. PROPOFOL. [Concomitant]
     Active Substance: PROPOFOL
     Indication: INDUCTION OF ANAESTHESIA
     Dosage: 150 MG, UNK
  11. ROCURONIUM BROMIDE. [Suspect]
     Active Substance: ROCURONIUM BROMIDE
     Indication: NEUROMUSCULAR BLOCKADE
     Dosage: 50 MG, UNK
     Route: 041

REACTIONS (2)
  - Respiratory arrest [Recovered/Resolved]
  - Recurrence of neuromuscular blockade [Recovered/Resolved]
